FAERS Safety Report 4536468-X (Version None)
Quarter: 2004Q4

REPORT INFORMATION
  Report Type: 
  Country: None (occurrence: None)
  Receive Date: 20041223
  Receipt Date: 20041201
  Transmission Date: 20050328
  Serious: Yes (Other)
  Sender: FDA-Public Use
  Company Number: US-AMGEN-US101354

PATIENT
  Sex: Female
  Weight: 77.6 kg

DRUGS (3)
  1. NEULASTA [Suspect]
     Indication: CHEMOTHERAPY
     Dates: start: 20040921, end: 20040921
  2. FLUDARABINE [Concomitant]
     Dates: start: 20040913, end: 20040917
  3. RITUXAN [Concomitant]
     Dates: start: 20040913, end: 20040913

REACTIONS (3)
  - ABDOMINAL PAIN UPPER [None]
  - HEPATIC CYST [None]
  - SPLENOMEGALY [None]
